FAERS Safety Report 9643881 (Version 1)
Quarter: 2013Q4

REPORT INFORMATION
  Report Type: Spontaneous
  Country: JP (occurrence: JP)
  Receive Date: 20131024
  Receipt Date: 20131024
  Transmission Date: 20140711
  Serious: Yes (Other)
  Sender: FDA-Public Use
  Company Number: JP-PFIZER INC-2013299056

PATIENT
  Sex: Female

DRUGS (2)
  1. LYRICA [Suspect]
     Indication: PAIN
     Dosage: 75 MG, 2X/DAY
     Route: 048
     Dates: start: 20130812, end: 20131015
  2. LYRICA [Suspect]
     Dosage: 75 MG, 2X/DAY
     Route: 048
     Dates: start: 20131017

REACTIONS (26)
  - Cerebral infarction [Unknown]
  - Dyspnoea [Unknown]
  - Eyelid ptosis [Unknown]
  - Nausea [Unknown]
  - Headache [Unknown]
  - Dysgeusia [Unknown]
  - Dizziness [Unknown]
  - Hypoaesthesia [Unknown]
  - Oedema [Unknown]
  - Urine output decreased [Unknown]
  - Muscular weakness [Unknown]
  - Feeling abnormal [Unknown]
  - Feeling cold [Unknown]
  - Hypoaesthesia [Unknown]
  - Decreased appetite [Unknown]
  - Gastrointestinal disorder [Unknown]
  - Aptyalism [Unknown]
  - Fear [Unknown]
  - Visual field defect [Unknown]
  - Insomnia [Unknown]
  - Feeling hot [Unknown]
  - Weight increased [Unknown]
  - Generalised oedema [Unknown]
  - Pruritus [Unknown]
  - Feeling abnormal [Unknown]
  - Asthenia [Unknown]
